FAERS Safety Report 4831227-2 (Version None)
Quarter: 2005Q4

REPORT INFORMATION
  Report Type: 
  Country: None (occurrence: None)
  Receive Date: 20051114
  Receipt Date: 20051104
  Transmission Date: 20060501
  Serious: Yes (Hospitalization)
  Sender: FDA-Public Use
  Company Number: ST-2005-008669

PATIENT
  Age: 69 Year
  Sex: Male
  Weight: 47.8 kg

DRUGS (22)
  1. OLMETEC [Suspect]
     Indication: HYPERTENSION
     Dosage: 20 MG QD PO
     Route: 048
     Dates: start: 20020819
  2. BASEN [Suspect]
     Indication: DIABETES MELLITUS
     Dosage: 0.3 MG TID PO
     Route: 048
     Dates: start: 20011220, end: 20051020
  3. YODEL [Concomitant]
  4. GASTER [Concomitant]
  5. WYTENS     /JPN/ [Concomitant]
  6. ACECOL [Concomitant]
  7. HYPEN [Concomitant]
  8. MUCOSTA [Concomitant]
  9. CARDENALIN [Concomitant]
  10. EPOGIN [Concomitant]
  11. PALUX [Concomitant]
  12. THYRADIN S [Concomitant]
  13. FERROMIA [Concomitant]
  14. ASPIRIN [Concomitant]
  15. ALMARL [Concomitant]
  16. ADALAT [Concomitant]
  17. DORNER [Concomitant]
  18. ANPLAG [Concomitant]
  19. PARACLODIN [Concomitant]
  20. CRAVIT [Concomitant]
  21. CALTAN [Concomitant]
  22. NITRODERM [Concomitant]

REACTIONS (2)
  - HYPOGLYCAEMIA [None]
  - LOSS OF CONSCIOUSNESS [None]
